FAERS Safety Report 20876826 (Version 1)
Quarter: 2022Q2

REPORT INFORMATION
  Report Type: Other
  Country: US (occurrence: None)
  Receive Date: 20220526
  Receipt Date: 20220526
  Transmission Date: 20220720
  Serious: Yes (Death)
  Sender: FDA-Public Use
  Company Number: US-ROCHE-3037846

PATIENT
  Age: 54 Year
  Sex: Male

DRUGS (10)
  1. ALECENSA [Suspect]
     Active Substance: ALECTINIB HYDROCHLORIDE
     Indication: Brain neoplasm malignant
     Route: 065
  2. ADVAIR DISKUS [Concomitant]
     Active Substance: FLUTICASONE PROPIONATE\SALMETEROL XINAFOATE
     Dosage: 500-50 MCG BLISTER, WITH INHALATION DEVICE. TAKE 1 PUFF BY INHALATION BID
  3. ALECTINIB HYDROCHLORIDE [Concomitant]
     Active Substance: ALECTINIB HYDROCHLORIDE
     Dosage: 150 MG CAPSULE TAKE 4 PO BID
     Route: 048
  4. DEXAMETHASONE [Concomitant]
     Active Substance: DEXAMETHASONE
     Dosage: TAKE 3 TABLETS BY MOUTH TODAY THEN TAKE 1 TABLET BY MOUTH TWICE DAILY
     Route: 048
  5. DEXAMETHASONE [Concomitant]
     Active Substance: DEXAMETHASONE
     Route: 048
  6. KLOR-CON [Concomitant]
     Active Substance: POTASSIUM CHLORIDE
     Route: 048
  7. LEVETIRACETAM [Concomitant]
     Active Substance: LEVETIRACETAM
     Route: 048
  8. LOMOTIL [Concomitant]
     Active Substance: ATROPINE SULFATE\DIPHENOXYLATE HYDROCHLORIDE
     Dosage: 2.5-0.25 MG TABLET
     Route: 048
  9. MARINOL [Concomitant]
     Active Substance: DRONABINOL
     Route: 048
  10. OMEPRAZOLE [Concomitant]
     Active Substance: OMEPRAZOLE
     Route: 048

REACTIONS (3)
  - Death [Fatal]
  - Malaise [Unknown]
  - Off label use [Unknown]

NARRATIVE: CASE EVENT DATE: 20191126
